FAERS Safety Report 10210940 (Version 2)
Quarter: 2014Q3

REPORT INFORMATION
  Report Type: Other
  Country: JP (occurrence: JP)
  Receive Date: 20140602
  Receipt Date: 20140710
  Transmission Date: 20150326
  Serious: Yes (Other)
  Sender: FDA-Public Use
  Company Number: JP-BRISTOL-MYERS SQUIBB COMPANY-20868386

PATIENT
  Age: 63 Year
  Sex: Male
  Weight: 49 kg

DRUGS (1)
  1. ERBITUX [Suspect]
     Active Substance: CETUXIMAB
     Indication: NASOPHARYNGEAL CANCER
     Dosage: 550MG ON 30OCT2013?350MG ON 06NOV2013
     Route: 041
     Dates: start: 20131030, end: 20131106

REACTIONS (1)
  - Pneumatosis intestinalis [Recovering/Resolving]

NARRATIVE: CASE EVENT DATE: 20131106
